FAERS Safety Report 9395988 (Version 1)
Quarter: 2013Q3

REPORT INFORMATION
  Report Type: Spontaneous
  Country: US (occurrence: US)
  Receive Date: 20130711
  Receipt Date: 20130711
  Transmission Date: 20140515
  Serious: No
  Sender: FDA-Public Use
  Company Number: US-PFIZER INC-2013202823

PATIENT
  Age: 85 Year
  Sex: Female
  Weight: 44.9 kg

DRUGS (5)
  1. NEURONTIN [Suspect]
     Indication: BACK PAIN
     Dosage: ONE TABLET AT NIGHT
     Dates: start: 20130625
  2. NEURONTIN [Suspect]
     Dosage: TWO TABLETS
     Dates: end: 20130706
  3. AMLODIPINE [Concomitant]
     Indication: HYPERTENSION
     Dosage: 5MG DAILY
  4. ACIPHEX [Concomitant]
     Indication: GASTROOESOPHAGEAL REFLUX DISEASE
     Dosage: 20MG DAILY
  5. VALIUM [Concomitant]
     Indication: DEPRESSION
     Dosage: 5MG DAILY

REACTIONS (3)
  - Lip blister [Recovering/Resolving]
  - Lip swelling [Recovering/Resolving]
  - Oral herpes [Recovering/Resolving]
